FAERS Safety Report 7418324-2 (Version None)
Quarter: 2011Q2

REPORT INFORMATION
  Report Type: 
  Country: None (occurrence: None)
  Receive Date: 20110415
  Receipt Date: 20100702
  Transmission Date: 20111010
  Serious: Yes (Life-Threatening, Other)
  Sender: FDA-Public Use
  Company Number: A0868409A

PATIENT
  Age: 30 Year
  Sex: Female
  Weight: 53.6 kg

DRUGS (3)
  1. LAMICTAL [Suspect]
     Indication: PRODUCT USED FOR UNKNOWN INDICATION
     Dosage: 150MG IN THE MORNING
     Route: 048
  2. ALBUTEROL [Concomitant]
  3. ZYRTEC [Concomitant]

REACTIONS (3)
  - ECTOPIC PREGNANCY [None]
  - ABORTION INDUCED [None]
  - DRUG EXPOSURE DURING PREGNANCY [None]
